FAERS Safety Report 6101694-5 (Version None)
Quarter: 2009Q1

REPORT INFORMATION
  Report Type: 
  Country: None (occurrence: None)
  Receive Date: 20090304
  Receipt Date: 20090224
  Transmission Date: 20090719
  Serious: Yes (Death, Hospitalization, Other)
  Sender: FDA-Public Use
  Company Number: US-JNJFOC-20090104253

PATIENT
  Sex: Male
  Weight: 42.18 kg

DRUGS (2)
  1. REMICADE [Suspect]
     Route: 042
  2. REMICADE [Suspect]
     Indication: CROHN'S DISEASE
     Route: 042

REACTIONS (1)
  - RECTAL CANCER METASTATIC [None]
